FAERS Safety Report 6473479-1 (Version None)
Quarter: 2009Q4

REPORT INFORMATION
  Report Type: 
  Country: None (occurrence: None)
  Receive Date: 20091204
  Receipt Date: 20090113
  Transmission Date: 20100525
  Serious: No
  Sender: FDA-Public Use
  Company Number: US-ELI_LILLY_AND_COMPANY-US200812005338

PATIENT
  Sex: Female

DRUGS (25)
  1. FORTEO [Suspect]
     Indication: OSTEOPOROSIS
     Dosage: 20 UG, DAILY (1/D)
     Dates: start: 20081030
  2. FORTEO [Suspect]
     Dosage: 20 UG, DAILY (1/D)
     Dates: start: 20081101
  3. SYNTHROID [Concomitant]
     Dosage: 88 UG, DAILY (1/D)
  4. ZETIA [Concomitant]
     Dosage: 10 MG, DAILY (1/D)
  5. COZAAR [Concomitant]
     Dosage: 50 MG, DAILY (1/D)
  6. OMEPRAZOLE [Concomitant]
     Dosage: TWO 20 MG, DAILY (1/D)
  7. CELEXA [Concomitant]
     Dosage: 20 MG, DAILY (1/D)
  8. RETIN-A [Concomitant]
     Dosage: 1 %,  TO FACE AND NECK
  9. AMBIEN [Concomitant]
     Dosage: 6.25 MG, AS NEEDED
  10. TRAMADOL HCL [Concomitant]
     Dosage: 50 MG, DAILY AS NEEDED
  11. CLONAZEPAM [Concomitant]
     Dosage: 1 MG, DAILY (1/D)
  12. ZANAFLEX [Concomitant]
     Dosage: TWO 4 MG, DAILY
  13. NEURONTIN [Concomitant]
     Dosage: FOUR 300 MG, DAILY
  14. QUININE SULFATE [Concomitant]
     Indication: MUSCLE SPASMS
     Dosage: 324 MG, AS NEEDED
  15. DARVOCET [Concomitant]
     Dosage: 100 - 650 ONE TO TWO A DAY
  16. MULTI-VITAMIN [Concomitant]
     Dosage: ONE DAILY (1/D)
  17. FOLIC ACID [Concomitant]
     Dosage: 400 UG, DAILY (1/D)
  18. ASCORBIC ACID [Concomitant]
     Dosage: 500 UG, UNK
  19. OCUVITE LUTEIN [Concomitant]
     Dosage: UNK, DAILY (1/D) TO THE EYES
  20. DOCUSATE SODIUM [Concomitant]
     Dosage: THREE 100 MG, DAILY
  21. CALCIUM WITH VITAMIN D [Concomitant]
     Dosage: 600 MG, DAILY (1/D)
  22. COENZYME Q10 [Concomitant]
     Dosage: 75 MG, DAILY (1/D)
  23. SELENIUM [Concomitant]
     Dosage: 200 MG, DAILY (1/D)
  24. ENTERIC ASPIRIN [Concomitant]
     Dosage: ONE DAILY (1/D)
  25. ZYRTEC [Concomitant]
     Dosage: ONE DAILY (1/D)

REACTIONS (1)
  - DURAL TEAR [None]
